FAERS Safety Report 18067195 (Version 4)
Quarter: 2021Q1

REPORT INFORMATION
  Report Type: Spontaneous
  Country: US (occurrence: US)
  Receive Date: 20200724
  Receipt Date: 20210315
  Transmission Date: 20210419
  Serious: Yes (Hospitalization, Disabling, Other)
  Sender: FDA-Public Use
  Company Number: US-PURDUE-USA-2020-0159037

PATIENT
  Sex: Female

DRUGS (5)
  1. KETOROLAC [Suspect]
     Active Substance: KETOROLAC TROMETHAMINE
     Indication: PRODUCT USED FOR UNKNOWN INDICATION
     Dosage: UNK
     Route: 065
  2. CYCLOBENZAPRINE. [Suspect]
     Active Substance: CYCLOBENZAPRINE
     Indication: PRODUCT USED FOR UNKNOWN INDICATION
     Dosage: UNK
     Route: 065
  3. OXYCODONE/ ACETAMINOPHEN TABLETS [Suspect]
     Active Substance: ACETAMINOPHEN\OXYCODONE HYDROCHLORIDE
     Indication: PAIN
     Dosage: UNK
     Route: 048
  4. OXYCONTIN [Suspect]
     Active Substance: OXYCODONE HYDROCHLORIDE
     Indication: PRODUCT USED FOR UNKNOWN INDICATION
     Dosage: UNK
     Route: 048
  5. OXYCODONE HYDROCHLORIDE (SIMILAR TO NDA 22?272) [Suspect]
     Active Substance: OXYCODONE HYDROCHLORIDE
     Indication: SPINAL FRACTURE
     Dosage: UNK
     Route: 048

REACTIONS (17)
  - Asthenia [Unknown]
  - Sitting disability [Unknown]
  - Developmental delay [Unknown]
  - Hallucination [Unknown]
  - Amnesia [Unknown]
  - Stress [Unknown]
  - Head titubation [Unknown]
  - Decreased appetite [Unknown]
  - Learning disability [Unknown]
  - Pain [Unknown]
  - Headache [Unknown]
  - Overdose [Unknown]
  - Cardiac disorder [Unknown]
  - Unevaluable event [Unknown]
  - Spinal operation [Unknown]
  - Walking aid user [Unknown]
  - Hypoacusis [Unknown]
